FAERS Safety Report 8957544 (Version 1)
Quarter: 2012Q4

REPORT INFORMATION
  Report Type: 
  Country: US (occurrence: US)
  Receive Date: 20121211
  Receipt Date: 20121211
  Transmission Date: 20130627
  Serious: No
  Sender: FDA-Public Use
  Company Number: US-ASTRAZENECA-2012SE89837

PATIENT
  Age: 75 Year
  Sex: Female

DRUGS (8)
  1. LISINOPRIL [Suspect]
     Route: 048
  2. CRESTOR [Suspect]
     Route: 048
  3. LOVAZA [Concomitant]
  4. PATANOL [Concomitant]
  5. OPT [Concomitant]
  6. MONTELUKAST [Concomitant]
  7. TRAIMCINOLONE ACET [Concomitant]
  8. OSCAL D [Concomitant]

REACTIONS (1)
  - Tremor [Recovered/Resolved]
